FAERS Safety Report 4999460-7 (Version None)
Quarter: 2006Q2

REPORT INFORMATION
  Report Type: 
  Country: None (occurrence: None)
  Receive Date: 20060511
  Receipt Date: 20060501
  Transmission Date: 20061013
  Serious: Yes (Other)
  Sender: FDA-Public Use
  Company Number: 2006UW08029

PATIENT
  Age: 71 Year
  Sex: Female

DRUGS (3)
  1. CRESTOR [Suspect]
     Route: 048
     Dates: start: 20040101
  2. PANTALOC [Concomitant]
     Indication: GASTROOESOPHAGEAL REFLUX DISEASE
  3. ZITHROMAX [Concomitant]
     Dates: start: 20060417

REACTIONS (2)
  - ABDOMINAL PAIN UPPER [None]
  - DIARRHOEA HAEMORRHAGIC [None]
